FAERS Safety Report 23266514 (Version 1)
Quarter: 2023Q4

REPORT INFORMATION
  Report Type: Spontaneous
  Country: JP (occurrence: JP)
  Receive Date: 20231206
  Receipt Date: 20231206
  Transmission Date: 20240110
  Serious: Yes (Other)
  Sender: FDA-Public Use
  Company Number: JP-ASTELLAS-2023JP013357

PATIENT
  Age: 4 Decade
  Sex: Female

DRUGS (2)
  1. XOSPATA [Suspect]
     Active Substance: GILTERITINIB
     Indication: Acute lymphocytic leukaemia
     Dosage: UNK, UNK, UNKNOWN FREQ.
     Route: 048
     Dates: start: 202309
  2. XOSPATA [Suspect]
     Active Substance: GILTERITINIB
     Dosage: UNK, UNK, UNKNOWN FREQ.
     Route: 048
     Dates: start: 202310

REACTIONS (2)
  - Cytokine release syndrome [Recovered/Resolved]
  - Product use in unapproved indication [Unknown]

NARRATIVE: CASE EVENT DATE: 20230901
